FAERS Safety Report 24714125 (Version 1)
Quarter: 2024Q4

REPORT INFORMATION
  Report Type: Spontaneous
  Country: US (occurrence: US)
  Receive Date: 20241209
  Receipt Date: 20241209
  Transmission Date: 20250115
  Serious: No
  Sender: REGENERON
  Company Number: US-REGENERON PHARMACEUTICALS, INC.-2024-127852

PATIENT
  Age: 88 Year
  Sex: Male

DRUGS (4)
  1. EYLEA [Suspect]
     Active Substance: AFLIBERCEPT
     Indication: Neovascular age-related macular degeneration
     Dosage: UNK, EVERY 6-8 WEEKS, (FORMULATION: UNKNOWN)
     Route: 031
  2. EYLEA [Suspect]
     Active Substance: AFLIBERCEPT
     Dosage: EVERY 6-8 WEEKS, (FORMULATION: UNKNOWN)
     Route: 031
     Dates: start: 20221013, end: 20221013
  3. EYLEA [Suspect]
     Active Substance: AFLIBERCEPT
     Dosage: UNK, EVERY 6-8 WEEKS (FORMULATION: UNKNOWN)
     Route: 031
     Dates: start: 20221201, end: 20221201
  4. EYLEA [Suspect]
     Active Substance: AFLIBERCEPT
     Dosage: UNK, EVERY 6-8 WEEKS  (FORMULATION: UNKNOWN)
     Route: 031
     Dates: start: 20230130, end: 20230130

REACTIONS (1)
  - Drug ineffective [Unknown]
